FAERS Safety Report 6602657-3 (Version None)
Quarter: 2010Q1

REPORT INFORMATION
  Report Type: 
  Country: None (occurrence: None)
  Receive Date: 20100218
  Receipt Date: 20100208
  Transmission Date: 20100710
  Serious: Yes (Other)
  Sender: FDA-Public Use
  Company Number: 440003J10USA

PATIENT
  Age: 57 Year
  Sex: Male
  Weight: 66 kg

DRUGS (6)
  1. SEROSTIM [Suspect]
     Indication: CACHEXIA
     Dosage: 6 MG, 1 IN 1 DAYS, NOT REPORTED
     Dates: start: 20050101, end: 20091201
  2. ZERIT [Concomitant]
  3. VIRAMUNE [Concomitant]
  4. MORPHINE [Concomitant]
  5. NEXIUM [Concomitant]
  6. PRILOSEC [Concomitant]

REACTIONS (4)
  - ANORECTAL DISORDER [None]
  - DIARRHOEA [None]
  - HUMAN PAPILLOMA VIRUS TEST POSITIVE [None]
  - PRECANCEROUS CELLS PRESENT [None]
